FAERS Safety Report 25392170 (Version 2)
Quarter: 2025Q2

REPORT INFORMATION
  Report Type: Spontaneous
  Country: JP (occurrence: JP)
  Receive Date: 20250603
  Receipt Date: 20250606
  Transmission Date: 20250716
  Serious: Yes (Other)
  Sender: MALLINCKRODT
  Company Number: JP-MALLINCKRODT-MNK202503142

PATIENT
  Age: 70 Year
  Sex: Female

DRUGS (3)
  1. NITRIC OXIDE [Suspect]
     Active Substance: NITRIC OXIDE
     Indication: Pulmonary hypertension
     Route: 055
  2. NITRIC OXIDE [Suspect]
     Active Substance: NITRIC OXIDE
     Indication: Cardiac failure
     Route: 055
  3. DOBUTAMINE [Concomitant]
     Active Substance: DOBUTAMINE HYDROCHLORIDE

REACTIONS (3)
  - Bacteraemia [Recovered/Resolved]
  - Rhabdomyolysis [Recovered/Resolved]
  - Blood lactic acid increased [Unknown]
